FAERS Safety Report 10272620 (Version 2)
Quarter: 2014Q3

REPORT INFORMATION
  Report Type: Spontaneous
  Country: US (occurrence: None)
  Receive Date: 20140630
  Receipt Date: 20140924
  Transmission Date: 20150326
  Serious: Yes (Death)
  Sender: FDA-Public Use
  Company Number: 1713747-2014-99994

PATIENT
  Sex: Male

DRUGS (3)
  1. PERITONEAL DIALYSIS SOLUTION [Suspect]
     Active Substance: CALCIUM CHLORIDE\DEXTROSE MONOHYDRATE\MAGNESIUM CHLORIDE\SODIUM CHLORIDE\SODIUM LACTATE
     Indication: RENAL FAILURE
     Dosage: INTRAPERITONEAL
  2. LIBERTY CYCLER SET [Concomitant]
  3. LIBERTY CYLCER [Concomitant]

REACTIONS (6)
  - Fall [None]
  - Malaise [None]
  - Cardiac death [None]
  - Hypertensive heart disease [None]
  - Loss of consciousness [None]
  - Arteriosclerosis coronary artery [None]

NARRATIVE: CASE EVENT DATE: 20140509
